FAERS Safety Report 9964446 (Version 1)
Quarter: 2014Q1

REPORT INFORMATION
  Report Type: Spontaneous
  Country: US (occurrence: US)
  Receive Date: 20140305
  Receipt Date: 20140305
  Transmission Date: 20141002
  Serious: Yes (Hospitalization, Other)
  Sender: FDA-Public Use
  Company Number: US-B.I. PHARMACEUTICALS,INC./RIDGEFIELD-2014-BI-09272BP

PATIENT
  Age: 87 Year
  Sex: Female
  Weight: 61 kg

DRUGS (2)
  1. PRADAXA [Suspect]
     Indication: ATRIAL FIBRILLATION
     Dosage: 300 MG
     Route: 048
     Dates: start: 201203, end: 201211
  2. PRADAXA [Suspect]
     Dosage: 150 MG
     Route: 048
     Dates: start: 201211

REACTIONS (9)
  - Cellulitis [Recovered/Resolved]
  - Angina pectoris [Recovered/Resolved]
  - Medical device complication [Recovered/Resolved]
  - Cellulitis [Recovered/Resolved]
  - Oesophagitis [Recovered/Resolved]
  - Pneumonia [Recovered/Resolved]
  - Kidney infection [Recovered/Resolved]
  - Cerebrovascular accident [Recovered/Resolved]
  - Localised infection [Not Recovered/Not Resolved]
